FAERS Safety Report 12432476 (Version 2)
Quarter: 2016Q3

REPORT INFORMATION
  Report Type: Report from Study
  Country: MX (occurrence: MX)
  Receive Date: 20160603
  Receipt Date: 20160713
  Transmission Date: 20161109
  Serious: Yes (Death, Hospitalization, Other)
  Sender: FDA-Public Use
  Company Number: MX-BAYER-2016-106102

PATIENT
  Age: 52 Year
  Sex: Male

DRUGS (1)
  1. NEXAVAR [Suspect]
     Active Substance: SORAFENIB
     Indication: RENAL CANCER
     Dosage: 400 MG, BID
     Dates: start: 20160125, end: 20160606

REACTIONS (9)
  - Palmar-plantar erythrodysaesthesia syndrome [Recovering/Resolving]
  - Cardiac arrest [Fatal]
  - Gait disturbance [Recovering/Resolving]
  - Thermohyperaesthesia [Recovering/Resolving]
  - Hyperkeratosis [Recovering/Resolving]
  - Pain in extremity [Recovering/Resolving]
  - Dehydration [Unknown]
  - Adverse event [Unknown]
  - Platelet disorder [Unknown]

NARRATIVE: CASE EVENT DATE: 20160125
